FAERS Safety Report 7458742-X (Version None)
Quarter: 2011Q2

REPORT INFORMATION
  Report Type: 
  Country: None (occurrence: None)
  Receive Date: 20110504
  Receipt Date: 20110427
  Transmission Date: 20111010
  Serious: Yes (Other)
  Sender: FDA-Public Use
  Company Number: PHHY2011GB35221

PATIENT
  Age: 79 Year
  Sex: Male
  Weight: 80 kg

DRUGS (14)
  1. ALENDRONATE SODIUM [Concomitant]
     Dosage: 70 MG, QW
  2. FINASTERIDE [Concomitant]
  3. SIMVASTATIN [Concomitant]
     Dosage: 40 MG, QD
  4. ADCAL-D3 [Concomitant]
  5. LACTULOSE [Concomitant]
     Dosage: UNK
  6. METFORMIN [Concomitant]
     Dosage: 1 G, BID
  7. PREDNISOLONE [Concomitant]
     Dosage: 7.5 MG, QD
  8. ADALAT [Concomitant]
     Dosage: 20 MG, UNK
  9. LEFLUNOMIDE [Suspect]
     Indication: RHEUMATOID ARTHRITIS
     Dosage: 20 MG, UNK
     Route: 048
     Dates: start: 20101201
  10. OMEPRAZOLE [Concomitant]
     Dosage: 20 MG, QD
  11. PARACETAMOL [Concomitant]
     Dosage: UNK
  12. GLICLAZIDE [Concomitant]
     Dosage: 30 MG, QD
  13. PERINDOPRIL [Concomitant]
     Dosage: 2 MG, QD
  14. TAMSULOSIN HCL [Concomitant]
     Dosage: 400 MG, QD

REACTIONS (4)
  - SKIN ULCER [None]
  - VASCULITIC RASH [None]
  - DIABETIC FOOT [None]
  - SKIN DISORDER [None]
